FAERS Safety Report 8364713-1 (Version None)
Quarter: 2012Q2

REPORT INFORMATION
  Report Type: 
  Country: None (occurrence: None)
  Receive Date: 20120516
  Receipt Date: 20120504
  Transmission Date: 20120825
  Serious: Yes (Disabling, Other)
  Sender: FDA-Public Use
  Company Number: FR-BRISTOL-MYERS SQUIBB COMPANY-16580516

PATIENT
  Age: 73 Year
  Sex: Female

DRUGS (8)
  1. METOPROLOL TARTRATE [Suspect]
     Dosage: SANDOZ
     Dates: start: 20100824, end: 20101201
  2. NEXIUM [Concomitant]
     Dates: start: 20100824
  3. TEMESTA [Concomitant]
     Dates: start: 20100824
  4. ALDACTONE [Suspect]
     Dates: start: 20100824
  5. LASIX [Suspect]
     Dates: start: 20100824
  6. DUPHALAC [Concomitant]
     Dates: start: 20100824
  7. COUMADIN [Suspect]
     Route: 048
     Dates: start: 20100824, end: 20101201
  8. CORDARONE [Suspect]
     Dosage: CORDARONE 200MG 1DF: 0.5 (UNIT NOT SPEICIFIED)
     Route: 048
     Dates: start: 20100824, end: 20101201

REACTIONS (2)
  - DYSPNOEA [None]
  - PULMONARY FIBROSIS [None]
